FAERS Safety Report 5195143-1 (Version None)
Quarter: 2006Q4

REPORT INFORMATION
  Report Type: 
  Country: None (occurrence: None)
  Receive Date: 20061229
  Receipt Date: 20060120
  Transmission Date: 20070319
  Serious: Yes (Hospitalization)
  Sender: FDA-Public Use
  Company Number: US-PFIZER INC-2006011256

PATIENT
  Sex: Female
  Weight: 68 kg

DRUGS (10)
  1. ATORVASTATIN CALCIUM [Suspect]
     Indication: CORONARY ARTERY DISEASE
     Dosage: DAILY DOSE:80MG
     Route: 048
     Dates: start: 20040412, end: 20040510
  2. ATORVASTATIN CALCIUM [Suspect]
     Dosage: DAILY DOSE:80MG
     Route: 048
     Dates: start: 20040511, end: 20060116
  3. CORGARD [Concomitant]
     Route: 048
  4. PAXIL [Concomitant]
     Route: 065
  5. ASPIRIN [Concomitant]
     Route: 065
  6. CLOPIDOGREL [Concomitant]
     Route: 065
  7. PREVACID [Concomitant]
     Route: 065
  8. AMBIEN [Concomitant]
     Route: 065
  9. NITROGLYCERIN [Concomitant]
     Route: 065
  10. HYDROCHLOROTHIAZIDE [Concomitant]
     Route: 065

REACTIONS (1)
  - CEREBRAL HAEMORRHAGE [None]
